FAERS Safety Report 7374797-5 (Version None)
Quarter: 2011Q1

REPORT INFORMATION
  Report Type: 
  Country: None (occurrence: None)
  Receive Date: 20110325
  Receipt Date: 20101118
  Transmission Date: 20110831
  Serious: No
  Sender: FDA-Public Use
  Company Number: US-MYLANLABS-2010S1021447

PATIENT
  Age: 47 Year
  Sex: Female

DRUGS (7)
  1. SOMA [Concomitant]
  2. FENTANYL-100 [Suspect]
     Indication: BACK PAIN
     Dosage: Q48H
     Route: 062
     Dates: start: 20100801
  3. LORAZEPAM [Concomitant]
     Indication: ANXIETY
  4. ALEVE [Concomitant]
  5. LEXAPRO [Concomitant]
     Indication: DEPRESSION
  6. FENTANYL-100 [Suspect]
     Indication: ARTHRALGIA
     Dosage: Q48H
     Route: 062
     Dates: start: 20100801
  7. OXYCODONE [Concomitant]
     Indication: BREAKTHROUGH PAIN

REACTIONS (1)
  - DRUG WITHDRAWAL SYNDROME [None]
